FAERS Safety Report 4881656-6 (Version None)
Quarter: 2006Q1

REPORT INFORMATION
  Report Type: 
  Country: None (occurrence: None)
  Receive Date: 20060112
  Receipt Date: 20060103
  Transmission Date: 20060701
  Serious: Yes (Other)
  Sender: FDA-Public Use
  Company Number: 2006003102

PATIENT
  Sex: Female
  Weight: 77.1115 kg

DRUGS (9)
  1. ZITHROMAX [Suspect]
     Indication: ASTHMA
  2. ZITHROMAX [Suspect]
     Indication: HYPERSENSITIVITY
  3. ZITHROMAX [Suspect]
     Indication: NASOPHARYNGITIS
  4. VASOTEC [Concomitant]
  5. PHENOBARBITAL [Concomitant]
  6. LEVSIN (HYOSCYAMINE SULFATE) [Concomitant]
  7. ALBUTEROL [Concomitant]
  8. SUDAFED (PSEUDOEPHEDRINE) [Concomitant]
  9. ALL OTHER THERAPEUTIC PRODUCTS [Concomitant]

REACTIONS (10)
  - ANAPHYLACTIC REACTION [None]
  - ASTHMA [None]
  - COLITIS ULCERATIVE [None]
  - COUGH [None]
  - DEAFNESS UNILATERAL [None]
  - HYPERSENSITIVITY [None]
  - INSOMNIA [None]
  - NASOPHARYNGITIS [None]
  - RESTRICTIVE PULMONARY DISEASE [None]
  - THERAPY NON-RESPONDER [None]
